FAERS Safety Report 15861654 (Version 1)
Quarter: 2019Q1

REPORT INFORMATION
  Report Type: Spontaneous
  Country: US (occurrence: US)
  Receive Date: 20190124
  Receipt Date: 20190124
  Transmission Date: 20190417
  Serious: No
  Sender: FDA-Public Use
  Company Number: US-DENTSPLY PHARMACEUTICAL-2018SCDP000457

PATIENT
  Sex: Male

DRUGS (1)
  1. ORAQIX [Suspect]
     Active Substance: LIDOCAINE\PRILOCAINE
     Indication: LOCAL ANAESTHESIA
     Dosage: UNK, SUBGINGIVAL
     Dates: start: 20181005, end: 20181005

REACTIONS (3)
  - Product quality issue [Unknown]
  - Dysgeusia [Unknown]
  - Drug ineffective [Unknown]
